FAERS Safety Report 7750180-5 (Version None)
Quarter: 2011Q3

REPORT INFORMATION
  Report Type: 
  Country: None (occurrence: None)
  Receive Date: 20110914
  Receipt Date: 20110914
  Transmission Date: 20111222
  Serious: Yes (Other)
  Sender: FDA-Public Use
  Company Number: None

PATIENT
  Age: 63 Year
  Sex: Male

DRUGS (1)
  1. XELODA [Suspect]
     Indication: NEOPLASM MALIGNANT
     Dosage: 2000MG AND 1500MG
     Route: 048
     Dates: start: 20110321, end: 20110913

REACTIONS (2)
  - DYSPNOEA [None]
  - IMPAIRED WORK ABILITY [None]
